FAERS Safety Report 23405251 (Version 1)
Quarter: 2024Q1

REPORT INFORMATION
  Report Type: Spontaneous
  Country: DE (occurrence: DE)
  Receive Date: 20240116
  Receipt Date: 20240116
  Transmission Date: 20240410
  Serious: Yes (Hospitalization)
  Sender: FDA-Public Use
  Company Number: DE-AMGEN-DEUSP2023169091

PATIENT
  Sex: Male

DRUGS (14)
  1. CYCLOPHOSPHAMIDE [Suspect]
     Active Substance: CYCLOPHOSPHAMIDE
     Indication: B-cell lymphoma
     Dosage: 1402.5 MILLIGRAM,  2 WEEK FOR 82 DAY, DOSAGE1: UNIT=NOT AVAILABLE, 07-NOV-2015
     Route: 042
     Dates: end: 20160127
  2. DOXORUBICIN [Suspect]
     Active Substance: DOXORUBICIN
     Indication: B-cell lymphoma
     Dosage: 99.5 MILLIGRAM, 99.5 MG; 2 WEE FOR 82 DAYS, DOSAGE1: UNIT=NOT AVAILABLE, 07-NOV-2015
     Route: 042
     Dates: end: 20160127
  3. METHOTREXATE [Suspect]
     Active Substance: METHOTREXATE
     Indication: B-cell lymphoma
     Dosage: 2.73 MILLIGRAM, 5 WEEK FOR 83 DAYS, DOSAGE1: UNIT=NOT AVAILABLE, 20-NOV-2015
     Route: 042
     Dates: end: 20160210
  4. PEGFILGRASTIM [Suspect]
     Active Substance: PEGFILGRASTIM
     Indication: B-cell lymphoma
     Dosage: 6 MILLIGRAM, 2 WEEKS FOR 87 DAYS, DOSAGE1: UNIT=NOT AVAILABLE
     Route: 058
     Dates: start: 20151105, end: 20160130
  5. PREDNISONE [Suspect]
     Active Substance: PREDNISONE
     Indication: B-cell lymphoma
     Dosage: 100 MILLIGRAM, 1 DAY FOR 84 DAYS, DOSAGE1: UNIT=NOT AVAILABLE,
     Route: 048
     Dates: start: 20151105, end: 20160127
  6. RITUXIMAB [Suspect]
     Active Substance: RITUXIMAB
     Indication: B-cell lymphoma
     Dosage: 701.25 MILLIGRAM; 2 WEEK FOR 97 DAYS, DOSAGE1: UNIT=NOT AVAILABLE
     Route: 042
     Dates: start: 20151105, end: 20160209
  7. VINCRISTINE [Suspect]
     Active Substance: VINCRISTINE
     Indication: B-cell lymphoma
     Dosage: 3.74 MILLIGRAM, ; 2 WEEKS FOR 78 DAYS, DOSAGE1: UNIT=NOT AVAILABLE, 11-NOV-2015
     Route: 042
     Dates: end: 20160127
  8. ACYCLOVIR [Concomitant]
     Active Substance: ACYCLOVIR
     Indication: Prophylaxis
     Dosage: 400 MILLIGRAM, 1X FOR 6 DAYS, DOSAGE1: UNIT=NOT AVAILABLE
     Route: 048
     Dates: start: 20151124, end: 20151129
  9. AMOXICILLIN [Concomitant]
     Active Substance: AMOXICILLIN
     Indication: Infection
     Dosage: 875 MILLIGRAM, 2X FOR 51 DAYS, DOSAGE1: UNIT=NOT AVAILABLE
     Route: 048
     Dates: start: 20151105, end: 20151225
  10. CHOLECALCIFEROL [Concomitant]
     Active Substance: CHOLECALCIFEROL
     Indication: Prophylaxis
     Dosage: 40000 IU; 1X FOR 117 DAYS, DOSAGE1: UNIT=NOT AVAILABLE
     Route: 048
     Dates: start: 20151105, end: 20160229
  11. ENOXAPARIN SODIUM [Concomitant]
     Active Substance: ENOXAPARIN SODIUM
     Indication: Prophylaxis
     Dosage: 4000 IU, 1X FOR 34 DAYS, DOSAGE1: UNIT=NOT AVAILABLE
     Route: 048
     Dates: start: 20151031, end: 20151203
  12. PANTOPRAZOLE SODIUM [Concomitant]
     Active Substance: PANTOPRAZOLE SODIUM
     Indication: Prophylaxis against gastrointestinal ulcer
     Dosage: UNK, 40 MILLIGRAM; 1X FOR 117 DAYS, DOSAGE1: UNIT=NOT AVAILABLE
     Route: 048
     Dates: start: 20151105, end: 20160229
  13. SULFAMETHOXAZOLE\TRIMETHOPRIM [Concomitant]
     Active Substance: SULFAMETHOXAZOLE\TRIMETHOPRIM
     Indication: Infection
     Dosage: 960 MILLIGRAM, 2X FOR 117 DAYS, DOSAGE1: UNIT=NOT AVAILABLE
     Route: 048
     Dates: start: 20151105, end: 20160229
  14. TAMSULOSIN [Concomitant]
     Active Substance: TAMSULOSIN
     Indication: Hyperplasia
     Dosage: 0.4 MILLIGRAM, 1X FOR 78 DAYS, DOSAGE1: UNIT=NOT AVAILABLE
     Route: 048
     Dates: start: 20151214, end: 20160229

REACTIONS (1)
  - Pyrexia [Recovered/Resolved]

NARRATIVE: CASE EVENT DATE: 20151106
